FAERS Safety Report 7668597-6 (Version None)
Quarter: 2011Q3

REPORT INFORMATION
  Report Type: 
  Country: None (occurrence: None)
  Receive Date: 20110808
  Receipt Date: 20110808
  Transmission Date: 20111222
  Serious: Yes (Hospitalization)
  Sender: FDA-Public Use
  Company Number: None

PATIENT
  Sex: Male
  Weight: 87.089 kg

DRUGS (2)
  1. CARBOPLATIN [Concomitant]
     Indication: LUNG NEOPLASM MALIGNANT
     Dosage: AUC 6
     Route: 041
     Dates: start: 20110511, end: 20110720
  2. PACLITAXEL [Suspect]
     Indication: LUNG NEOPLASM MALIGNANT
     Dosage: 150MG/M2
     Route: 041
     Dates: start: 20110511, end: 20110720

REACTIONS (1)
  - DEEP VEIN THROMBOSIS [None]
